FAERS Safety Report 5811398-1 (Version None)
Quarter: 2008Q3

REPORT INFORMATION
  Report Type: 
  Country: None (occurrence: None)
  Receive Date: 20080716
  Receipt Date: 20080708
  Transmission Date: 20090109
  Serious: Yes (Hospitalization)
  Sender: FDA-Public Use
  Company Number: ES-WYE-H05010408

PATIENT
  Age: 78 Year
  Sex: Female

DRUGS (1)
  1. TRANGOREX [Suspect]
     Indication: ATRIAL FLUTTER
     Dosage: UNKNOWN
     Route: 048
     Dates: start: 20080102, end: 20080103

REACTIONS (1)
  - GASTRITIS [None]
